FAERS Safety Report 7047789-3 (Version None)
Quarter: 2010Q4

REPORT INFORMATION
  Report Type: 
  Country: None (occurrence: None)
  Receive Date: 20101015
  Receipt Date: 20101006
  Transmission Date: 20110411
  Serious: Yes (Other)
  Sender: FDA-Public Use
  Company Number: JP-PFIZER INC-2010123304

PATIENT

DRUGS (3)
  1. GABAPEN [Suspect]
  2. EXCEGRAN [Concomitant]
  3. DEPAKENE [Concomitant]

REACTIONS (3)
  - EOSINOPHIL COUNT INCREASED [None]
  - PLEURAL EFFUSION [None]
  - PLEURISY [None]
